FAERS Safety Report 24680593 (Version 1)
Quarter: 2024Q4

REPORT INFORMATION
  Report Type: Spontaneous
  Country: EG (occurrence: EG)
  Receive Date: 20241129
  Receipt Date: 20241129
  Transmission Date: 20250115
  Serious: Yes (Life-Threatening)
  Sender: PFIZER
  Company Number: EG-PFIZER INC-PV202400154747

PATIENT
  Age: 23 Year
  Sex: Female
  Weight: 45 kg

DRUGS (5)
  1. OXALIPLATIN [Suspect]
     Active Substance: OXALIPLATIN
     Indication: Non-small cell lung cancer
     Route: 042
  2. GEMCITABINE\GEMCITABINE HYDROCHLORIDE [Suspect]
     Active Substance: GEMCITABINE\GEMCITABINE HYDROCHLORIDE
     Indication: Non-small cell lung cancer
     Route: 042
  3. HYDROCORTISONE [Concomitant]
     Active Substance: HYDROCORTISONE
  4. PIRAFENE [Concomitant]
  5. GEMCITABINE [Concomitant]
     Active Substance: GEMCITABINE

REACTIONS (7)
  - Oxygen saturation decreased [Recovered/Resolved]
  - Hypotension [Recovered/Resolved]
  - Dyspnoea [Recovered/Resolved]
  - Flushing [Recovered/Resolved]
  - Cough [Recovered/Resolved]
  - Tachycardia [Recovered/Resolved]
  - Off label use [Unknown]
